FAERS Safety Report 9053633 (Version 1)
Quarter: 2013Q1

REPORT INFORMATION
  Report Type: Spontaneous
  Country: VE (occurrence: VE)
  Receive Date: 20130208
  Receipt Date: 20130208
  Transmission Date: 20140127
  Serious: Yes (Death)
  Sender: FDA-Public Use
  Company Number: PHHY2011VE66685

PATIENT
  Age: 78 None
  Sex: Female

DRUGS (2)
  1. EXJADE [Suspect]
     Indication: IRON DEFICIENCY ANAEMIA
     Dosage: 500 MG, DAILY
     Route: 048
  2. PLATELETS [Concomitant]
     Indication: IRON DEFICIENCY ANAEMIA
     Dosage: UNK UKN, QMO
     Route: 042

REACTIONS (6)
  - Respiratory arrest [Fatal]
  - Blood urine present [Not Recovered/Not Resolved]
  - Swelling [Not Recovered/Not Resolved]
  - Dizziness [Recovered/Resolved]
  - Vomiting [Recovered/Resolved]
  - Pyrexia [Not Recovered/Not Resolved]
